FAERS Safety Report 9394459 (Version 1)
Quarter: 2013Q3

REPORT INFORMATION
  Report Type: Spontaneous
  Country: US (occurrence: US)
  Receive Date: 20130711
  Receipt Date: 20130711
  Transmission Date: 20140515
  Serious: No
  Sender: FDA-Public Use
  Company Number: US-PFIZER INC-2013202988

PATIENT
  Sex: Male

DRUGS (2)
  1. XANAX [Suspect]
     Indication: NECK PAIN
     Dosage: 10 MG, UNK
  2. LYRICA [Suspect]
     Indication: NECK PAIN
     Dosage: UNK

REACTIONS (2)
  - Off label use [Unknown]
  - Therapeutic response unexpected [Unknown]
